FAERS Safety Report 8111476-0 (Version None)
Quarter: 2012Q1

REPORT INFORMATION
  Report Type: 
  Country: None (occurrence: None)
  Receive Date: 20120203
  Receipt Date: 20120123
  Transmission Date: 20120608
  Serious: Yes (Other)
  Sender: FDA-Public Use
  Company Number: GB-BRISTOL-MYERS SQUIBB COMPANY-16379570

PATIENT
  Age: 57 Year
  Sex: Female

DRUGS (5)
  1. PACLITAXEL [Suspect]
     Indication: OVARIAN CANCER
     Dosage: ON DAY 1,8,15 EVERY 28DAYS RESTARTED WITH 20MG/M2
     Dates: start: 20090301, end: 20090501
  2. ETOPOSIDE [Suspect]
     Indication: OVARIAN CANCER
     Dates: start: 20040301
  3. CARBOPLATIN [Suspect]
     Indication: OVARIAN CANCER
     Dosage: AUC =6
     Dates: start: 20090301
  4. CISPLATIN [Suspect]
     Indication: OVARIAN CANCER
     Dates: start: 20040301
  5. BLEOMYCIN SULFATE [Suspect]
     Indication: OVARIAN CANCER
     Dates: start: 20040301

REACTIONS (2)
  - NEOPLASM MALIGNANT [None]
  - NEUROPATHY PERIPHERAL [None]
